FAERS Safety Report 11244946 (Version 5)
Quarter: 2018Q4

REPORT INFORMATION
  Report Type: Spontaneous
  Country: US (occurrence: US)
  Receive Date: 20150707
  Receipt Date: 20181025
  Transmission Date: 20190204
  Serious: Yes (Hospitalization, Other)
  Sender: FDA-Public Use
  Company Number: US-DSJP-DSU-2015-120637

PATIENT

DRUGS (2)
  1. BENICAR [Suspect]
     Active Substance: OLMESARTAN MEDOXOMIL
     Indication: HYPERTENSION
     Dosage: 20 MG, UNK
     Dates: start: 2002, end: 2004
  2. BENICAR HCT [Suspect]
     Active Substance: HYDROCHLOROTHIAZIDE\OLMESARTAN MEDOXOMIL
     Indication: HYPERTENSION
     Dosage: 40-12.5 MG, QD
     Dates: start: 2004

REACTIONS (15)
  - Colitis ulcerative [Unknown]
  - Gastrooesophageal reflux disease [Not Recovered/Not Resolved]
  - Renal cyst [Unknown]
  - Cholecystitis [Recovered/Resolved]
  - Hepatic cyst [Unknown]
  - Diverticulitis [Recovered/Resolved]
  - Abdominal hernia [Unknown]
  - Dizziness [Unknown]
  - Urinary tract infection [Not Recovered/Not Resolved]
  - Pancreatitis chronic [Not Recovered/Not Resolved]
  - Renal failure [Unknown]
  - Large intestine polyp [Recovered/Resolved]
  - Sprue-like enteropathy [Not Recovered/Not Resolved]
  - Irritable bowel syndrome [Not Recovered/Not Resolved]
  - Hiatus hernia [Not Recovered/Not Resolved]

NARRATIVE: CASE EVENT DATE: 20020809
